FAERS Safety Report 24591907 (Version 2)
Quarter: 2025Q3

REPORT INFORMATION
  Report Type: Spontaneous
  Country: JP (occurrence: JP)
  Receive Date: 20241108
  Receipt Date: 20250802
  Transmission Date: 20251020
  Serious: Yes (Other)
  Sender: ALEXION PHARMACEUTICALS
  Company Number: JP-ASTRAZENECA-240060037_013120_P_1

PATIENT
  Age: 81 Year
  Sex: Female

DRUGS (4)
  1. IMFINZI [Suspect]
     Active Substance: DURVALUMAB
     Indication: Hepatocellular carcinoma
  2. IMJUDO [Suspect]
     Active Substance: TREMELIMUMAB\TREMELIMUMAB-ACTL
  3. FLUCONAZOLE [Suspect]
     Active Substance: FLUCONAZOLE
  4. FLUCONAZOLE [Suspect]
     Active Substance: FLUCONAZOLE
     Route: 065

REACTIONS (2)
  - Pneumonia cryptococcal [Unknown]
  - Drug eruption [Unknown]
